FAERS Safety Report 5695338-4 (Version None)
Quarter: 2008Q2

REPORT INFORMATION
  Report Type: 
  Country: None (occurrence: None)
  Receive Date: 20080404
  Receipt Date: 20080327
  Transmission Date: 20081010
  Serious: Yes (Other)
  Sender: FDA-Public Use
  Company Number: JP-MERCK-0803USA04639

PATIENT
  Age: 65 Year
  Sex: Female
  Weight: 57 kg

DRUGS (6)
  1. FOSAMAX [Suspect]
     Indication: OSTEOPOROSIS
     Route: 048
     Dates: start: 20071231, end: 20080310
  2. ALINAMIN F (FURSULTIAMINE HYDROCHLORIDE) [Concomitant]
     Indication: HYPOVITAMINOSIS
     Route: 048
     Dates: start: 19961007, end: 20080318
  3. CINAL [Concomitant]
     Indication: HYPOVITAMINOSIS
     Route: 048
     Dates: start: 19961007, end: 20080318
  4. JUVELA [Concomitant]
     Indication: HYPOVITAMINOSIS
     Route: 048
     Dates: start: 19961007, end: 20080318
  5. ASPARA [Concomitant]
     Route: 048
     Dates: start: 20041012, end: 20080318
  6. ACTONEL [Concomitant]
     Route: 065
     Dates: end: 20071231

REACTIONS (2)
  - GINGIVAL BLEEDING [None]
  - GINGIVITIS [None]
